FAERS Safety Report 6416265-0 (Version None)
Quarter: 2009Q4

REPORT INFORMATION
  Report Type: 
  Country: None (occurrence: None)
  Receive Date: 20091027
  Receipt Date: 20091020
  Transmission Date: 20100525
  Serious: Yes (Hospitalization)
  Sender: FDA-Public Use
  Company Number: US-ELI_LILLY_AND_COMPANY-US200812000411

PATIENT
  Sex: Female
  Weight: 113.38 kg

DRUGS (11)
  1. BYETTA [Suspect]
     Indication: TYPE 2 DIABETES MELLITUS
     Dosage: 5 UG, 2/D
     Route: 058
     Dates: start: 20070101, end: 20080101
  2. BYETTA [Suspect]
     Dosage: 5 UG, 2/D
     Route: 058
     Dates: start: 20080301, end: 20080628
  3. BYETTA [Suspect]
     Dosage: 5 UG, 2/D
     Route: 058
     Dates: start: 20090701, end: 20090801
  4. BYETTA [Suspect]
     Dosage: 10 UG, 2/D
     Route: 058
     Dates: start: 20090801
  5. ANTI-DIABETICS [Concomitant]
     Dosage: UNK, UNKNOWN
  6. LEVAQUIN [Concomitant]
     Dates: start: 20080101
  7. LANTUS [Concomitant]
     Indication: TYPE 2 DIABETES MELLITUS
     Dosage: 26 U, 2/D
     Dates: start: 20080101
  8. METFORMIN HCL [Concomitant]
     Indication: TYPE 2 DIABETES MELLITUS
     Dosage: 1000 MG, DAILY (1/D)
     Dates: start: 20080101
  9. VALIUM [Concomitant]
     Dosage: 10 MG, OTHER
  10. LIPITOR [Concomitant]
     Indication: BLOOD PRESSURE
     Dosage: 10 MG, DAILY (1/D)
  11. JANUVIA [Concomitant]
     Indication: TYPE 2 DIABETES MELLITUS
     Dosage: 10 MG, EACH EVENING

REACTIONS (7)
  - ADRENAL NEOPLASM [None]
  - BLISTER [None]
  - FEELING HOT [None]
  - IMPAIRED HEALING [None]
  - POST PROCEDURAL SWELLING [None]
  - POSTOPERATIVE WOUND INFECTION [None]
  - WOUND DRAINAGE [None]
